FAERS Safety Report 18425187 (Version 2)
Quarter: 2020Q4

REPORT INFORMATION
  Report Type: Spontaneous
  Country: GB (occurrence: GB)
  Receive Date: 20201026
  Receipt Date: 20201026
  Transmission Date: 20210114
  Serious: Yes (Life-Threatening, Hospitalization, Other)
  Sender: FDA-Public Use
  Company Number: GB-ACCORD-206267

PATIENT
  Age: 86 Year
  Sex: Female

DRUGS (3)
  1. APIXABAN [Suspect]
     Active Substance: APIXABAN
     Indication: ATRIAL FIBRILLATION
     Route: 048
  2. ATORVASTATIN [Concomitant]
     Active Substance: ATORVASTATIN
  3. BISOPROLOL [Concomitant]
     Active Substance: BISOPROLOL

REACTIONS (2)
  - Cerebral haemorrhage [Unknown]
  - Asthenia [Unknown]

NARRATIVE: CASE EVENT DATE: 20201007
